FAERS Safety Report 5376711-0 (Version None)
Quarter: 2007Q3

REPORT INFORMATION
  Report Type: 
  Country: None (occurrence: None)
  Receive Date: 20070703
  Receipt Date: 20070622
  Transmission Date: 20080115
  Serious: Yes (Hospitalization)
  Sender: FDA-Public Use
  Company Number: FRWYE898022JUN07

PATIENT
  Age: 36 Year
  Sex: Female

DRUGS (4)
  1. EFFEXOR XR [Suspect]
     Dosage: OVERDOSE AMOUNT: 750 MG
     Route: 048
     Dates: start: 20070405, end: 20070405
  2. THERALENE [Suspect]
     Dosage: OVERDOSE AMOUNT: 2400 MG
     Route: 048
     Dates: start: 20070405, end: 20070405
  3. ETHANOL [Suspect]
     Dosage: UNKNOWN
     Route: 048
     Dates: start: 20070405, end: 20070405
  4. DEPAMIDE [Suspect]
     Dosage: OVERDOSE AMOUNT: 9 G
     Route: 048
     Dates: start: 20070405, end: 20070405

REACTIONS (7)
  - BLOOD LACTIC ACID INCREASED [None]
  - BLOOD PRESSURE DECREASED [None]
  - COMA [None]
  - HAEMODYNAMIC INSTABILITY [None]
  - INTENTIONAL OVERDOSE [None]
  - MIOSIS [None]
  - OXYGEN SATURATION DECREASED [None]
